FAERS Safety Report 9890796 (Version 2)
Quarter: 2014Q3

REPORT INFORMATION
  Report Type: Spontaneous
  Country: US (occurrence: None)
  Receive Date: 20140207
  Receipt Date: 20140905
  Transmission Date: 20150326
  Serious: Yes (Hospitalization, Other)
  Sender: FDA-Public Use
  Company Number: 1713747-2014-99907

PATIENT
  Age: 62 Year
  Sex: Male

DRUGS (15)
  1. DELFLEX [Suspect]
     Active Substance: CALCIUM CHLORIDE\DEXTROSE MONOHYDRATE\MAGNESIUM CHLORIDE\SODIUM CHLORIDE\SODIUM LACTATE
     Indication: RENAL FAILURE CHRONIC
     Dates: start: 20140103
  2. LIBERTY CYCLER [Concomitant]
     Active Substance: DEVICE
  3. LIBERTY CYCLER SET [Concomitant]
  4. CALCITROL [Concomitant]
     Active Substance: CALCITRIOL
  5. NASAL SPRAY [Concomitant]
     Active Substance: UNSPECIFIED INGREDIENT
  6. MEDICATIONS [Concomitant]
     Active Substance: UNSPECIFIED INGREDIENT
  7. THORAZINE [Concomitant]
     Active Substance: CHLORPROMAZINE
  8. FLUTICASONE [Concomitant]
     Active Substance: FLUTICASONE\FLUTICASONE PROPIONATE
  9. VITAMIN D3 [Concomitant]
     Active Substance: CHOLECALCIFEROL
  10. ENALPRIL [Concomitant]
  11. DIGOXIN. [Concomitant]
     Active Substance: DIGOXIN
  12. FOURSEMIDE [Concomitant]
  13. AMLODIPINE [Concomitant]
     Active Substance: AMLODIPINE BESYLATE
  14. CARBIDOPA-LEVODOPA [Concomitant]
     Active Substance: CARBIDOPA\LEVODOPA
  15. GENTAMICIN [Concomitant]
     Active Substance: GENTAMICIN

REACTIONS (2)
  - Malaise [None]
  - Pneumonia [None]

NARRATIVE: CASE EVENT DATE: 20140103
